FAERS Safety Report 24907535 (Version 7)
Quarter: 2025Q3

REPORT INFORMATION
  Report Type: Spontaneous
  Country: JP (occurrence: JP)
  Receive Date: 20250131
  Receipt Date: 20250810
  Transmission Date: 20251020
  Serious: Yes (Life-Threatening, Hospitalization, Other)
  Sender: ALEXION PHARMACEUTICALS
  Company Number: JP-ASTRAZENECA-250004976_013120_P_1

PATIENT
  Age: 58 Year
  Sex: Female
  Weight: 69 kg

DRUGS (12)
  1. IMFINZI [Suspect]
     Active Substance: DURVALUMAB
     Indication: Endometrial cancer
     Dosage: 1120 MILLIGRAM, Q3W
     Dates: start: 20241224, end: 20241224
  2. IMFINZI [Suspect]
     Active Substance: DURVALUMAB
     Dosage: 1120 MILLIGRAM, Q3W
     Dates: start: 20250304, end: 20250403
  3. PACLITAXEL [Suspect]
     Active Substance: PACLITAXEL
     Indication: Endometrial cancer
     Dosage: 285 MILLIGRAM/SQ. METER
     Route: 065
     Dates: start: 20241224
  4. PACLITAXEL [Suspect]
     Active Substance: PACLITAXEL
     Dosage: 285 MILLIGRAM/SQ. METER, QD
     Route: 065
     Dates: start: 20241224, end: 20250403
  5. CARBOPLATIN [Suspect]
     Active Substance: CARBOPLATIN
     Indication: Endometrial cancer
     Dosage: 755 MILLIGRAM/SQ. METER
     Route: 065
     Dates: start: 20241224
  6. CARBOPLATIN [Suspect]
     Active Substance: CARBOPLATIN
     Dosage: 755 MILLIGRAM/SQ. METER, QD
     Route: 065
     Dates: start: 20241224, end: 20250403
  7. DECADRON [Concomitant]
     Active Substance: DEXAMETHASONE
     Dosage: 2 MILLIGRAM, BID
     Dates: start: 20241224, end: 20241225
  8. DECADRON [Concomitant]
     Active Substance: DEXAMETHASONE
     Indication: Allergy prophylaxis
  9. HERBALS [Concomitant]
     Active Substance: HERBALS
     Dosage: 2.5 GRAM, TID
     Dates: start: 20241224, end: 20250107
  10. HERBALS [Concomitant]
     Active Substance: HERBALS
     Indication: Neuropathy peripheral
  11. DIPHENHYDRAMINE [Concomitant]
     Active Substance: DIPHENHYDRAMINE
     Dosage: 10 MILLIGRAM, QD
     Dates: start: 20241224, end: 20241224
  12. DIPHENHYDRAMINE [Concomitant]
     Active Substance: DIPHENHYDRAMINE
     Indication: Allergy prophylaxis

REACTIONS (9)
  - Uterine perforation [Recovered/Resolved]
  - Acute kidney injury [Recovered/Resolved]
  - Septic shock [Recovered/Resolved]
  - Peritonitis [Unknown]
  - Disseminated intravascular coagulation [Recovered/Resolved]
  - Multiple organ dysfunction syndrome [Recovered/Resolved]
  - Bacteraemia [Recovered/Resolved]
  - Sepsis [Recovered/Resolved]
  - Liver disorder [Recovered/Resolved]

NARRATIVE: CASE EVENT DATE: 20250103
